FAERS Safety Report 22306767 (Version 5)
Quarter: 2023Q4

REPORT INFORMATION
  Report Type: Report from Study
  Country: CA (occurrence: CA)
  Receive Date: 20230511
  Receipt Date: 20231108
  Transmission Date: 20240109
  Serious: Yes (Other)
  Sender: FDA-Public Use
  Company Number: CA-002147023-NVSC2023CA076091

PATIENT
  Age: 60 Year
  Sex: Male

DRUGS (7)
  1. ELTROMBOPAG OLAMINE [Suspect]
     Active Substance: ELTROMBOPAG OLAMINE
     Indication: Immune thrombocytopenia
     Dosage: 50 MG (EVERY OTHER DAY)
     Route: 048
     Dates: start: 20230323
  2. ELTROMBOPAG OLAMINE [Suspect]
     Active Substance: ELTROMBOPAG OLAMINE
     Dosage: 50 MG (6 DAYS A WEEK FROM TUESDAY TO SUNDAY NOT ON MONDAY)
     Route: 048
     Dates: start: 20230323
  3. ELTROMBOPAG OLAMINE [Suspect]
     Active Substance: ELTROMBOPAG OLAMINE
     Dosage: 50 MG, QD
     Route: 048
  4. ELTROMBOPAG OLAMINE [Suspect]
     Active Substance: ELTROMBOPAG OLAMINE
     Dosage: 50 MG, QOD (EVERY 2 DAYS)
     Route: 048
  5. PREDNISONE [Concomitant]
     Active Substance: PREDNISONE
     Indication: Product used for unknown indication
     Dosage: 50 MG
     Route: 065
  6. PREDNISONE [Concomitant]
     Active Substance: PREDNISONE
     Dosage: 40 MG
     Route: 065
  7. PREDNISONE [Concomitant]
     Active Substance: PREDNISONE
     Dosage: 80 MG
     Route: 065

REACTIONS (12)
  - Platelet count decreased [Unknown]
  - Viraemia [Unknown]
  - Fatigue [Unknown]
  - Contusion [Recovering/Resolving]
  - Contusion [Recovered/Resolved]
  - Hair growth abnormal [Unknown]
  - Brain fog [Unknown]
  - Epistaxis [Recovered/Resolved]
  - Blood blister [Recovered/Resolved]
  - Platelet count increased [Unknown]
  - Inappropriate schedule of product administration [Unknown]
  - Nasopharyngitis [Unknown]
